FAERS Safety Report 4629860-6 (Version None)
Quarter: 2005Q2

REPORT INFORMATION
  Report Type: 
  Country: None (occurrence: None)
  Receive Date: 20050407
  Receipt Date: 20050329
  Transmission Date: 20051028
  Serious: Yes (Life-Threatening)
  Sender: FDA-Public Use
  Company Number: 2005SE01820

PATIENT
  Age: 68 Year
  Sex: Male
  Weight: 76 kg

DRUGS (7)
  1. AMIAS [Suspect]
     Indication: CARDIAC FAILURE CONGESTIVE
     Dosage: 4 MG QD PO
     Route: 048
     Dates: start: 20050225, end: 20050227
  2. ENALAPRIL [Concomitant]
  3. DILTIAZEM [Concomitant]
  4. COMBIVENT [Concomitant]
  5. FRUSEMIDE [Concomitant]
  6. CITALOPRAM HYDROBROMIDE [Concomitant]
  7. SPIRONOLACTONE [Concomitant]

REACTIONS (2)
  - ANAPHYLACTIC REACTION [None]
  - HYPONATRAEMIA [None]
